FAERS Safety Report 9790301 (Version 1)
Quarter: 2013Q4

REPORT INFORMATION
  Report Type: Spontaneous
  Country: GR (occurrence: GR)
  Receive Date: 20131231
  Receipt Date: 20131231
  Transmission Date: 20140711
  Serious: Yes (Other)
  Sender: FDA-Public Use
  Company Number: PHHY2013GR149256

PATIENT
  Age: 62 Year
  Sex: Female

DRUGS (3)
  1. ONBREZ [Suspect]
     Dosage: UNK
  2. KEPRA [Concomitant]
     Dosage: UNK
  3. TRILEPTAL [Concomitant]
     Dosage: UNK

REACTIONS (6)
  - Convulsion [Recovered/Resolved]
  - Confusional state [Unknown]
  - Asthenia [Unknown]
  - Headache [Unknown]
  - Balance disorder [Recovered/Resolved]
  - Delusion [Recovered/Resolved]
